FAERS Safety Report 11307437 (Version 1)
Quarter: 2015Q3

REPORT INFORMATION
  Report Type: Spontaneous
  Country: US (occurrence: US)
  Receive Date: 20150723
  Receipt Date: 20150723
  Transmission Date: 20151125
  Serious: No
  Sender: FDA-Public Use
  Company Number: US-BAUSCH-SP08195

PATIENT
  Age: 63 Year
  Sex: Female
  Weight: 53.57 kg

DRUGS (5)
  1. LACTULOSE. [Concomitant]
     Active Substance: LACTULOSE
     Indication: HEPATIC ENCEPHALOPATHY
  2. MIRALAX [Concomitant]
     Active Substance: POLYETHYLENE GLYCOL 3350
     Indication: CONSTIPATION
  3. XIFAXAN [Suspect]
     Active Substance: RIFAXIMIN
     Indication: HEPATIC ENCEPHALOPATHY
     Route: 048
     Dates: start: 2013
  4. CARVEDILOL. [Concomitant]
     Active Substance: CARVEDILOL
     Indication: BLOOD PRESSURE INCREASED
  5. SPIRONOLACTONE. [Concomitant]
     Active Substance: SPIRONOLACTONE
     Indication: SWELLING

REACTIONS (2)
  - Dysarthria [Recovered/Resolved]
  - Hypoaesthesia [Recovered/Resolved]

NARRATIVE: CASE EVENT DATE: 201408
